FAERS Safety Report 8063963-1 (Version None)
Quarter: 2012Q1

REPORT INFORMATION
  Report Type: 
  Country: None (occurrence: None)
  Receive Date: 20120123
  Receipt Date: 20120113
  Transmission Date: 20120608
  Serious: Yes (Hospitalization)
  Sender: FDA-Public Use
  Company Number: US-BAYER-2012-002218

PATIENT
  Age: 27 Year
  Sex: Female
  Weight: 63.492 kg

DRUGS (8)
  1. ONDANSETRON [Concomitant]
     Indication: NAUSEA
     Dosage: 4 MG, EVERY 6 HOURS AS NEEDED
     Route: 048
  2. DROSPIRENONE AND ETHINYL ESTRADIOL [Suspect]
     Indication: CONTRACEPTION
     Dosage: UNK
     Dates: start: 20090101, end: 20091201
  3. AMITRIPTYLINE HCL [Concomitant]
     Dosage: 10 MG, HS
     Route: 048
  4. VICODIN [Concomitant]
  5. ALBUTEROL [Concomitant]
  6. HYDROCODONE BITARTRATE AND ACETAMINOPHEN [Concomitant]
     Dosage: 5-500 TAB
     Route: 048
  7. NAPROXEN [Concomitant]
     Indication: PAIN
     Dosage: 500 MG, PRN
     Route: 048
  8. ONDANSETRON [Concomitant]
     Indication: VOMITING

REACTIONS (8)
  - ABDOMINAL PAIN [None]
  - NERVOUSNESS [None]
  - CHOLECYSTITIS [None]
  - CHOLELITHIASIS [None]
  - DEPRESSION [None]
  - FEAR OF DEATH [None]
  - BILIARY COLIC [None]
  - EMOTIONAL DISTRESS [None]
